FAERS Safety Report 19058142 (Version 1)
Quarter: 2021Q1

REPORT INFORMATION
  Report Type: Spontaneous
  Country: CN (occurrence: CN)
  Receive Date: 20210324
  Receipt Date: 20210324
  Transmission Date: 20210420
  Serious: Yes (Hospitalization)
  Sender: FDA-Public Use
  Company Number: CN-BAXTER-2021BAX005697

PATIENT
  Age: 45 Year
  Sex: Female
  Weight: 69 kg

DRUGS (2)
  1. 0.9% SODIUM CHLORIDE INJECTION [Suspect]
     Active Substance: SODIUM CHLORIDE
     Indication: MEDICATION DILUTION
     Dosage: NS 500ML+  HOLOXAN 3.5 G
     Route: 041
     Dates: start: 20210211, end: 20210213
  2. HOLOXAN [Suspect]
     Active Substance: IFOSFAMIDE
     Indication: OSTEOSARCOMA
     Dosage: HOLOXAN 3.5G + NS 500ML
     Route: 041
     Dates: start: 20210211, end: 20210213

REACTIONS (3)
  - Cystitis haemorrhagic [Recovering/Resolving]
  - Vomiting [Recovering/Resolving]
  - Nausea [Recovering/Resolving]

NARRATIVE: CASE EVENT DATE: 20210214
